FAERS Safety Report 17850573 (Version 1)
Quarter: 2020Q2

REPORT INFORMATION
  Report Type: Spontaneous
  Country: US (occurrence: US)
  Receive Date: 20200602
  Receipt Date: 20200602
  Transmission Date: 20200714
  Serious: No
  Sender: FDA-Public Use
  Company Number: None

PATIENT
  Age: 80 Year
  Sex: Male

DRUGS (1)
  1. NETARSUDIL (NETARSUDIL 0.02% SOLN, OPH) [Suspect]
     Active Substance: NETARSUDIL
     Indication: GLAUCOMA
     Route: 047
     Dates: start: 20191227, end: 20200511

REACTIONS (2)
  - Eye disorder [None]
  - Dermatitis contact [None]

NARRATIVE: CASE EVENT DATE: 20200601
